FAERS Safety Report 9734422 (Version 1)
Quarter: 2013Q4

REPORT INFORMATION
  Report Type: Report from Study
  Country: CA (occurrence: CA)
  Receive Date: 20131206
  Receipt Date: 20131206
  Transmission Date: 20140711
  Serious: Yes (Death, Other)
  Sender: FDA-Public Use
  Company Number: CA-ROCHE-1310232

PATIENT
  Age: 46 Year
  Sex: Female
  Weight: 79.4 kg

DRUGS (12)
  1. XELODA [Suspect]
     Indication: BREAST CANCER
     Route: 048
     Dates: start: 20131113, end: 20131122
  2. XELODA [Suspect]
     Indication: METASTASES TO BONE
  3. LORAZEPAM [Concomitant]
  4. PREVACID [Concomitant]
  5. PRISTIQ [Concomitant]
  6. AMITRIPTYLINE [Concomitant]
  7. JAMP SENNA [Concomitant]
  8. DOCUSATE SODIUM [Concomitant]
  9. OLANZAPINE [Concomitant]
  10. MORPHINE [Concomitant]
  11. XGEVA [Concomitant]
  12. DEXAMETHASONE [Concomitant]

REACTIONS (3)
  - Death [Fatal]
  - Diarrhoea [Unknown]
  - Dehydration [Unknown]
